FAERS Safety Report 4575952-X (Version None)
Quarter: 2005Q1

REPORT INFORMATION
  Report Type: 
  Country: None (occurrence: None)
  Receive Date: 20050127
  Receipt Date: 20041001
  Transmission Date: 20050727
  Serious: No
  Sender: FDA-Public Use
  Company Number: USA041079936

PATIENT
  Age: 12 Year
  Sex: Female

DRUGS (1)
  1. STRATTERA [Suspect]
     Indication: ATTENTION DEFICIT/HYPERACTIVITY DISORDER
     Dosage: 70 MG DAY
     Dates: start: 20040601, end: 20040901

REACTIONS (5)
  - BLEPHAROSPASM [None]
  - DRUG EFFECT DECREASED [None]
  - DYSKINESIA [None]
  - DYSTONIA [None]
  - PRURITUS [None]
